FAERS Safety Report 7338977-7 (Version None)
Quarter: 2011Q1

REPORT INFORMATION
  Report Type: 
  Country: None (occurrence: None)
  Receive Date: 20110308
  Receipt Date: 20110223
  Transmission Date: 20110831
  Serious: Yes (Hospitalization, Other)
  Sender: FDA-Public Use
  Company Number: FR-ELI_LILLY_AND_COMPANY-FR201102006755

PATIENT
  Sex: Male

DRUGS (6)
  1. ROCEPHIN [Concomitant]
     Dosage: 1 D/F, DAILY (1/D)
     Route: 042
     Dates: start: 20091022, end: 20091031
  2. CONTRAMAL [Concomitant]
     Dosage: 50 MG, 2/D
     Route: 048
     Dates: start: 20091001
  3. DURAGESIC-100 [Concomitant]
     Route: 062
  4. CYMBALTA [Suspect]
     Dosage: 1 D/F, DAILY (1/D)
     Route: 048
     Dates: end: 20091110
  5. TAVANIC [Concomitant]
     Dosage: 500 MG, 2/D
     Route: 048
     Dates: start: 20091022, end: 20091031
  6. LYRICA [Concomitant]
     Dosage: 150 MG, UNK
     Route: 048
     Dates: start: 20070101

REACTIONS (2)
  - AUTONOMIC NERVOUS SYSTEM IMBALANCE [None]
  - GAMMA-GLUTAMYLTRANSFERASE INCREASED [None]
